FAERS Safety Report 5800951-7 (Version None)
Quarter: 2008Q3

REPORT INFORMATION
  Report Type: 
  Country: None (occurrence: None)
  Receive Date: 20080703
  Receipt Date: 20080627
  Transmission Date: 20090109
  Serious: Yes (Hospitalization, Other)
  Sender: FDA-Public Use
  Company Number: US-BOEHRINGER INGELHEIM GMBH, GERMANY-2008-BP-08629BP

PATIENT
  Sex: Female

DRUGS (10)
  1. MELOXICAM [Suspect]
  2. SELEGILINE HCL [Suspect]
     Indication: DEPRESSION
     Route: 062
     Dates: start: 20070801
  3. LITHIUM CARBONATE [Suspect]
  4. COZAAR [Concomitant]
  5. AMLODIPINE [Concomitant]
  6. SYNTHROID [Concomitant]
  7. ZOFRAN [Concomitant]
  8. VITAMIN E [Concomitant]
  9. NEURONTIN [Concomitant]
  10. TYLENOL [Concomitant]

REACTIONS (8)
  - ABDOMINAL DISTENSION [None]
  - APPLICATION SITE RASH [None]
  - GASTRITIS [None]
  - GLOSSODYNIA [None]
  - NAUSEA [None]
  - OESOPHAGITIS [None]
  - RENAL FAILURE [None]
  - SUICIDAL IDEATION [None]
